FAERS Safety Report 6162930-2 (Version None)
Quarter: 2009Q2

REPORT INFORMATION
  Report Type: 
  Country: None (occurrence: None)
  Receive Date: 20090417
  Receipt Date: 20090410
  Transmission Date: 20091009
  Serious: Yes (Hospitalization)
  Sender: FDA-Public Use
  Company Number: THQ2009A02122

PATIENT
  Age: 56 Year
  Sex: Female

DRUGS (5)
  1. LANSOPRAZOLE [Suspect]
     Dosage: 30 MG (30 MG, 1 IN 1 D) PER ORAL
     Route: 048
  2. MANEVAC [Suspect]
     Indication: CONSTIPATION
  3. SENOKOT (SENNA ALEXANDRINA FRUIT) [Suspect]
     Indication: CONSTIPATION
     Dosage: (1 IN 1 D)
  4. SERETIDE [Suspect]
     Indication: CHRONIC OBSTRUCTIVE PULMONARY DISEASE
     Dosage: 4 DF (2 DF, 2 IN 1 D) INHALATION
     Route: 055
     Dates: start: 20030101
  5. VENTOLIN [Suspect]
     Indication: CHRONIC OBSTRUCTIVE PULMONARY DISEASE
     Dosage: INHALATION
     Route: 055
     Dates: start: 20020523

REACTIONS (22)
  - ABDOMINAL DISTENSION [None]
  - BRONCHIECTASIS [None]
  - CHEST DISCOMFORT [None]
  - CHEST PAIN [None]
  - CONSTIPATION [None]
  - COUGH [None]
  - DIZZINESS [None]
  - DRUG INEFFECTIVE [None]
  - DYSPHONIA [None]
  - DYSPNOEA [None]
  - FEMORAL HERNIA [None]
  - INCREASED UPPER AIRWAY SECRETION [None]
  - INTESTINAL RESECTION [None]
  - LARYNGITIS [None]
  - LOWER RESPIRATORY TRACT INFECTION [None]
  - LUNG DISORDER [None]
  - PAIN [None]
  - PLEURISY [None]
  - SPUTUM DISCOLOURED [None]
  - SPUTUM RETENTION [None]
  - THYROID NEOPLASM [None]
  - UMBILICAL HERNIA [None]
